FAERS Safety Report 4414228-8 (Version None)
Quarter: 2004Q3

REPORT INFORMATION
  Report Type: 
  Country: None (occurrence: None)
  Receive Date: 20040728
  Receipt Date: 20040720
  Transmission Date: 20050211
  Serious: Yes (Hospitalization)
  Sender: FDA-Public Use
  Company Number: 2004-118780-NL

PATIENT
  Age: 65 Year
  Sex: Female

DRUGS (5)
  1. MIRTAZAPINE [Suspect]
     Indication: DEPRESSION
     Dosage: 30 MG
     Route: 048
     Dates: start: 20040608, end: 20040613
  2. DIHYDROERGOTAMINE [Suspect]
     Dosage: 4.5 ML
     Route: 048
     Dates: start: 20040523, end: 20040607
  3. PRAZEPAM [Suspect]
     Dosage: 0.5 DF
     Route: 048
     Dates: start: 20040519, end: 20040613
  4. VENLAFAXINE HCL [Suspect]
     Dosage: SEE IMAGE
     Route: 048
     Dates: start: 20040507, end: 20040510
  5. VENLAFAXINE HCL [Suspect]
     Dosage: SEE IMAGE
     Route: 048
     Dates: start: 20040511, end: 20040514

REACTIONS (1)
  - HEPATITIS [None]
